FAERS Safety Report 8604689-2 (Version None)
Quarter: 2012Q3

REPORT INFORMATION
  Report Type: 
  Country: None (occurrence: None)
  Receive Date: 20120820
  Receipt Date: 20120814
  Transmission Date: 20120928
  Serious: Yes (Other)
  Sender: FDA-Public Use
  Company Number: PHEH2012US015886

PATIENT
  Sex: Female

DRUGS (3)
  1. VIVELLE-DOT [Suspect]
     Indication: MENOPAUSE
     Dosage: 0.025 MG, QW2
     Route: 062
  2. PROGESTERONE [Concomitant]
     Indication: MENOPAUSE
     Dosage: 100 UG, UNK
     Route: 048
  3. SYNTHROID [Concomitant]
     Indication: THYROID HORMONE REPLACEMENT THERAPY
     Dosage: 1.25 MG, QD
     Route: 048

REACTIONS (2)
  - NEOPLASM [None]
  - PAIN IN EXTREMITY [None]
